FAERS Safety Report 7709854-4 (Version None)
Quarter: 2011Q3

REPORT INFORMATION
  Report Type: 
  Country: None (occurrence: None)
  Receive Date: 20110825
  Receipt Date: 20110822
  Transmission Date: 20111222
  Serious: Yes (Hospitalization)
  Sender: FDA-Public Use
  Company Number: US-MERCK-1105USA02132

PATIENT
  Age: 62 Year
  Sex: Female
  Weight: 90 kg

DRUGS (5)
  1. FOSAMAX [Suspect]
     Route: 048
     Dates: start: 20040804, end: 20080213
  2. CYANOCOBALAMIN [Concomitant]
     Route: 065
     Dates: start: 19700101
  3. FOSAMAX [Suspect]
     Indication: OSTEOPOROSIS
     Route: 048
     Dates: start: 20031020, end: 20040617
  4. CALCIUM (UNSPECIFIED) [Concomitant]
     Route: 065
     Dates: start: 19800101
  5. NEXIUM [Concomitant]
     Route: 065
     Dates: start: 20030101, end: 20060101

REACTIONS (14)
  - FEMUR FRACTURE [None]
  - BONE PAIN [None]
  - IMPAIRED HEALING [None]
  - RADICULOPATHY [None]
  - BURSITIS [None]
  - VITAMIN D DEFICIENCY [None]
  - LOW TURNOVER OSTEOPATHY [None]
  - INTERVERTEBRAL DISC PROTRUSION [None]
  - TACHYCARDIA PAROXYSMAL [None]
  - SPONDYLOLISTHESIS [None]
  - ARTHRALGIA [None]
  - BACK PAIN [None]
  - CHEST PAIN [None]
  - FATIGUE [None]
